FAERS Safety Report 7877041-5 (Version None)
Quarter: 2011Q4

REPORT INFORMATION
  Report Type: 
  Country: None (occurrence: None)
  Receive Date: 20111031
  Receipt Date: 20110907
  Transmission Date: 20120403
  Serious: No
  Sender: FDA-Public Use
  Company Number: US-ABBOTT-11P-163-0852649-00

PATIENT
  Sex: Female

DRUGS (1)
  1. CREON [Suspect]
     Indication: PRODUCT USED FOR UNKNOWN INDICATION
     Dosage: 6000ULIPASE,19000UPROTEASE,30000UAMYLASE

REACTIONS (8)
  - LIP SWELLING [None]
  - DRUG DOSE OMISSION [None]
  - GOUT [None]
  - OEDEMA PERIPHERAL [None]
  - DIABETES MELLITUS [None]
  - INCORRECT DOSE ADMINISTERED [None]
  - PRURITUS [None]
  - HYPERSENSITIVITY [None]
